FAERS Safety Report 18981241 (Version 3)
Quarter: 2021Q2

REPORT INFORMATION
  Report Type: Report from Study
  Country: CA (occurrence: CA)
  Receive Date: 20210308
  Receipt Date: 20210408
  Transmission Date: 20210717
  Serious: Yes (Hospitalization, Other)
  Sender: FDA-Public Use
  Company Number: CA-JNJFOC-20210306330

PATIENT
  Age: 11 Year
  Sex: Male
  Weight: 33.5 kg

DRUGS (1)
  1. REMICADE [Suspect]
     Active Substance: INFLIXIMAB
     Indication: CROHN^S DISEASE
     Route: 042
     Dates: start: 20191203

REACTIONS (5)
  - Abdominal discomfort [Recovering/Resolving]
  - Streptococcal infection [Recovering/Resolving]
  - Paediatric autoimmune neuropsychiatric disorders associated with streptococcal infection [Not Recovered/Not Resolved]
  - Diarrhoea [Recovering/Resolving]
  - Constipation [Unknown]

NARRATIVE: CASE EVENT DATE: 20210219
